FAERS Safety Report 11587433 (Version 4)
Quarter: 2016Q3

REPORT INFORMATION
  Report Type: Report from Study
  Country: CR (occurrence: CR)
  Receive Date: 20151001
  Receipt Date: 20160810
  Transmission Date: 20161109
  Serious: Yes (Hospitalization, Other)
  Sender: FDA-Public Use
  Company Number: PHHY2015CR117093

PATIENT
  Age: 0 Day
  Sex: Male
  Weight: 1.71 kg

DRUGS (2)
  1. TASIGNA [Suspect]
     Active Substance: NILOTINIB
     Indication: FOETAL EXPOSURE DURING PREGNANCY
     Dosage: 200 MG, BID
     Route: 064
  2. DEXAMETASON//DEXAMETHASONE [Concomitant]
     Indication: FOETAL EXPOSURE DURING PREGNANCY
     Route: 064
     Dates: start: 20110811

REACTIONS (13)
  - Selective eating disorder [Unknown]
  - Anaemia [Recovered/Resolved]
  - Premature baby [Unknown]
  - Jaundice [Unknown]
  - Cough [Unknown]
  - Nasopharyngitis [Unknown]
  - Immature respiratory system [Unknown]
  - Bronchiolitis [Unknown]
  - Bronchiolitis [Recovered/Resolved]
  - Foetal exposure during pregnancy [Unknown]
  - Rhinitis [Unknown]
  - Abdominal pain [Unknown]
  - Dyspnoea [Unknown]

NARRATIVE: CASE EVENT DATE: 20150812
